FAERS Safety Report 7375600-X (Version None)
Quarter: 2011Q1

REPORT INFORMATION
  Report Type: 
  Country: None (occurrence: None)
  Receive Date: 20110325
  Receipt Date: 20110323
  Transmission Date: 20110831
  Serious: Yes (Other)
  Sender: FDA-Public Use
  Company Number: US-BAYER-2011-026049

PATIENT
  Sex: Female

DRUGS (4)
  1. YASMIN [Suspect]
     Dosage: UNK
     Route: 048
     Dates: start: 20040608, end: 20050213
  2. YASMIN [Suspect]
     Dosage: UNK
     Dates: start: 20070731, end: 20080728
  3. OCELLA [Suspect]
     Dosage: UNK
     Route: 048
     Dates: start: 20080729, end: 20090814
  4. YASMIN [Suspect]
     Dosage: UNK
     Dates: start: 20060624, end: 20061014

REACTIONS (1)
  - CHOLECYSTECTOMY [None]
